FAERS Safety Report 14218328 (Version 2)
Quarter: 2018Q1

REPORT INFORMATION
  Report Type: Spontaneous
  Country: US (occurrence: US)
  Receive Date: 20171123
  Receipt Date: 20180123
  Transmission Date: 20180508
  Serious: Yes (Other)
  Sender: FDA-Public Use
  Company Number: US-GLAXOSMITHKLINE-US2017GSK178963

PATIENT
  Age: 51 Year
  Sex: Male
  Weight: 124.72 kg

DRUGS (1)
  1. NUCALA [Suspect]
     Active Substance: MEPOLIZUMAB
     Indication: ASTHMA
     Dosage: 100 MG, CYC
     Route: 058
     Dates: start: 20160127

REACTIONS (5)
  - Mandibular mass [Unknown]
  - Squamous cell carcinoma of the tongue [Unknown]
  - Surgery [Unknown]
  - Weight decreased [Unknown]
  - Swelling [Unknown]

NARRATIVE: CASE EVENT DATE: 20170217
